FAERS Safety Report 20749309 (Version 2)
Quarter: 2022Q2

REPORT INFORMATION
  Report Type: Spontaneous
  Country: JP (occurrence: JP)
  Receive Date: 20220426
  Receipt Date: 20220503
  Transmission Date: 20220720
  Serious: Yes (Hospitalization, Other)
  Sender: FDA-Public Use
  Company Number: JP-Accord-260474

PATIENT
  Age: 7 Year
  Sex: Male
  Weight: 20.6 kg

DRUGS (5)
  1. TACROLIMUS [Suspect]
     Active Substance: TACROLIMUS
     Indication: Graft versus host disease
     Dosage: 29 DAYS
     Route: 048
  2. MYCOPHENOLATE MOFETIL [Suspect]
     Active Substance: MYCOPHENOLATE MOFETIL
     Indication: Graft versus host disease in gastrointestinal tract
     Dosage: TAPERED OFF ON DAY 212
     Route: 048
  3. METHOTREXATE [Suspect]
     Active Substance: METHOTREXATE
     Indication: Graft versus host disease
     Dosage: SHORT-COURSE
  4. METHYLPREDNISOLONE [Suspect]
     Active Substance: METHYLPREDNISOLONE
     Indication: Acute graft versus host disease in intestine
     Dosage: STARTED ON DAY 12 MODERATE DOSES
     Route: 042
  5. BECLOMETHASONE DIPROPIONATE [Concomitant]
     Active Substance: BECLOMETHASONE DIPROPIONATE
     Indication: Graft versus host disease in gastrointestinal tract
     Route: 048

REACTIONS (4)
  - BK virus infection [Recovered/Resolved]
  - Cystitis haemorrhagic [Recovered/Resolved]
  - Renal impairment [Recovered/Resolved]
  - Cytomegalovirus infection [Recovered/Resolved]
